FAERS Safety Report 5735745-4 (Version None)
Quarter: 2008Q2

REPORT INFORMATION
  Report Type: 
  Country: None (occurrence: None)
  Receive Date: 20080508
  Receipt Date: 20070707
  Transmission Date: 20081010
  Serious: Yes (Hospitalization)
  Sender: FDA-Public Use
  Company Number: 2007RR-08553

PATIENT
  Age: 38 Year
  Sex: Male

DRUGS (1)
  1. ACETAMINOPHEN [Suspect]

REACTIONS (1)
  - TOXIC EPIDERMAL NECROLYSIS [None]
